FAERS Safety Report 17120933 (Version 1)
Quarter: 2019Q4

REPORT INFORMATION
  Report Type: Spontaneous
  Country: US (occurrence: US)
  Receive Date: 20191206
  Receipt Date: 20191206
  Transmission Date: 20200122
  Serious: No
  Sender: FDA-Public Use
  Company Number: US-UCBSA-2017028531

PATIENT

DRUGS (1)
  1. VIMPAT [Suspect]
     Active Substance: LACOSAMIDE
     Indication: PROPHYLAXIS
     Dosage: 100 MG, 2X/DAY (BID)

REACTIONS (2)
  - Intentional product misuse [Unknown]
  - Unevaluable event [Recovered/Resolved]
